FAERS Safety Report 5679036-9 (Version None)
Quarter: 2008Q1

REPORT INFORMATION
  Report Type: 
  Country: None (occurrence: None)
  Receive Date: 20080321
  Receipt Date: 20080310
  Transmission Date: 20080703
  Serious: Yes (Disabling)
  Sender: FDA-Public Use
  Company Number: ALL1-2007-01083

PATIENT
  Age: 13 Year
  Sex: Male
  Weight: 43.1 kg

DRUGS (1)
  1. DAYTRANA [Suspect]
     Indication: ATTENTION DEFICIT/HYPERACTIVITY DISORDER
     Dosage: 15 MG, 1X/DAY: QD, TRANSDERMAL
     Route: 062
     Dates: start: 20070621, end: 20070921

REACTIONS (6)
  - ABNORMAL BEHAVIOUR [None]
  - AGGRESSION [None]
  - AGITATION [None]
  - APPLICATION SITE RASH [None]
  - MOOD SWINGS [None]
  - OFF LABEL USE [None]
